FAERS Safety Report 11363344 (Version 4)
Quarter: 2015Q4

REPORT INFORMATION
  Report Type: Report from Study
  Country: BR (occurrence: BR)
  Receive Date: 20150811
  Receipt Date: 20151028
  Transmission Date: 20160304
  Serious: Yes (Other)
  Sender: FDA-Public Use
  Company Number: BR-ROCHE-1602891

PATIENT
  Age: 76 Year
  Sex: Female
  Weight: 59.1 kg

DRUGS (11)
  1. ACTEMRA [Suspect]
     Active Substance: TOCILIZUMAB
     Dosage: RECEIVED 3 INFUSIONS
     Route: 042
     Dates: start: 20150601, end: 20150801
  2. OLMETEC [Concomitant]
     Active Substance: OLMESARTAN MEDOXOMIL
     Route: 065
  3. SERETIDE [Concomitant]
     Active Substance: FLUTICASONE FUROATE\SALMETEROL XINAFOATE
     Dosage: 50/250 MICROGRAM
     Route: 065
  4. ARAVA [Concomitant]
     Active Substance: LEFLUNOMIDE
     Route: 065
  5. FOSTAIR [Concomitant]
     Active Substance: BECLOMETHASONE\FORMOTEROL
     Indication: LUNG DISORDER
     Dosage: 2 JETS IN THE MORNING AND AT NIGHT
     Route: 065
  6. ACTEMRA [Suspect]
     Active Substance: TOCILIZUMAB
     Indication: RHEUMATOID ARTHRITIS
     Dosage: RECEIVED 3 INFUSIONS
     Route: 042
     Dates: start: 20150417
  7. MANIVASC [Concomitant]
     Active Substance: MANIDIPINE HYDROCHLORIDE
     Route: 065
  8. LEFLUNOMIDE. [Concomitant]
     Active Substance: LEFLUNOMIDE
     Route: 065
  9. CORTISONE [Concomitant]
     Active Substance: CORTISONE\HYDROCORTISONE
     Route: 065
  10. HYDROCHLOROTHIAZIDE. [Concomitant]
     Active Substance: HYDROCHLOROTHIAZIDE
     Indication: HYPERTENSION
     Route: 065
  11. ALDOMET [Concomitant]
     Active Substance: METHYLDOPA
     Route: 065

REACTIONS (9)
  - Pneumonia [Recovered/Resolved]
  - Depressed mood [Unknown]
  - Illusion [Unknown]
  - Dry mouth [Not Recovered/Not Resolved]
  - Body height decreased [Unknown]
  - Immunosuppression [Unknown]
  - Anxiety [Not Recovered/Not Resolved]
  - Weight fluctuation [Unknown]
  - Pneumonia [Unknown]

NARRATIVE: CASE EVENT DATE: 201506
